FAERS Safety Report 24242343 (Version 1)
Quarter: 2024Q3

REPORT INFORMATION
  Report Type: Spontaneous
  Country: MA (occurrence: None)
  Receive Date: 20240823
  Receipt Date: 20240823
  Transmission Date: 20241016
  Serious: Yes (Hospitalization, Other)
  Sender: UNICHEM
  Company Number: MA-Unichem Pharmaceuticals (USA) Inc-UCM202408-001050

PATIENT

DRUGS (2)
  1. AMITRIPTYLINE HYDROCHLORIDE [Suspect]
     Active Substance: AMITRIPTYLINE HYDROCHLORIDE
     Indication: Product used for unknown indication
     Dosage: UNKNOWN
  2. PAROXETINE [Suspect]
     Active Substance: PAROXETINE
     Indication: Product used for unknown indication
     Dosage: UNKNOWN

REACTIONS (4)
  - Hyperreflexia [Unknown]
  - Myoclonus [Unknown]
  - Serotonin syndrome [Unknown]
  - Drug interaction [Unknown]
